FAERS Safety Report 7000876-8 (Version None)
Quarter: 2010Q3

REPORT INFORMATION
  Report Type: 
  Country: None (occurrence: None)
  Receive Date: 20100920
  Receipt Date: 20100908
  Transmission Date: 20110219
  Serious: Yes (Hospitalization)
  Sender: FDA-Public Use
  Company Number: PHHY2010US60402

PATIENT
  Sex: Male

DRUGS (1)
  1. TEKTURNA [Suspect]
     Dosage: 300 (UNIT UNSPECIFIED) QD
     Route: 048

REACTIONS (1)
  - RENAL FAILURE ACUTE [None]
